FAERS Safety Report 8583919-X (Version None)
Quarter: 2012Q3

REPORT INFORMATION
  Report Type: 
  Country: None (occurrence: None)
  Receive Date: 20120810
  Receipt Date: 20120717
  Transmission Date: 20120928
  Serious: No
  Sender: FDA-Public Use
  Company Number: US-009507513-1207USA005948

PATIENT

DRUGS (7)
  1. SPIRIVA [Suspect]
     Indication: PULMONARY FIBROSIS
  2. BENZONATATE [Concomitant]
  3. ASPIRIN [Concomitant]
  4. LISINOPRIL [Concomitant]
  5. OXYGEN [Concomitant]
  6. DULERA [Suspect]
     Indication: PULMONARY FIBROSIS
     Dosage: 2 DF, BID
     Dates: start: 20120710
  7. METOPROLOL TARTRATE [Concomitant]

REACTIONS (3)
  - OFF LABEL USE [None]
  - DRUG INEFFECTIVE FOR UNAPPROVED INDICATION [None]
  - OXYGEN SATURATION DECREASED [None]
